FAERS Safety Report 7900556-8 (Version None)
Quarter: 2011Q4

REPORT INFORMATION
  Report Type: 
  Country: None (occurrence: None)
  Receive Date: 20111108
  Receipt Date: 20111103
  Transmission Date: 20120403
  Serious: Yes (Other)
  Sender: FDA-Public Use
  Company Number: US-AMGEN-USASP2011057405

PATIENT
  Age: 8 Year
  Sex: Female

DRUGS (3)
  1. CORTICOSTEROIDS [Concomitant]
     Indication: HISTIOCYTOSIS HAEMATOPHAGIC
  2. NEUPOGEN [Suspect]
     Indication: HISTIOCYTOSIS HAEMATOPHAGIC
     Dates: start: 20110101
  3. ANTINEOPLASTIC AGENTS [Concomitant]
     Indication: HISTIOCYTOSIS HAEMATOPHAGIC

REACTIONS (2)
  - DRUG INEFFECTIVE [None]
  - INFECTION [None]
